FAERS Safety Report 5630674-9 (Version None)
Quarter: 2008Q1

REPORT INFORMATION
  Report Type: 
  Country: None (occurrence: None)
  Receive Date: 20080213
  Receipt Date: 20080130
  Transmission Date: 20080703
  Serious: Yes (Death, Other)
  Sender: FDA-Public Use
  Company Number: 2008SU0020

PATIENT
  Age: 81 Year
  Sex: Female

DRUGS (6)
  1. SULAR [Suspect]
     Indication: HYPERTENSION
  2. BENICAR [Concomitant]
  3. CARDURA [Concomitant]
  4. TOPROL [Concomitant]
  5. LISINOPRIL [Concomitant]
  6. ZOCOR [Concomitant]

REACTIONS (2)
  - FEELING ABNORMAL [None]
  - MYOCARDIAL INFARCTION [None]
